FAERS Safety Report 5866090-4 (Version None)
Quarter: 2008Q3

REPORT INFORMATION
  Report Type: 
  Country: None (occurrence: None)
  Receive Date: 20080829
  Receipt Date: 20080827
  Transmission Date: 20090109
  Serious: Yes (Hospitalization)
  Sender: FDA-Public Use
  Company Number: AU-GENENTECH-261064

PATIENT
  Sex: Female
  Weight: 75 kg

DRUGS (9)
  1. BLINDED APOMAB (PRO95780) [Suspect]
     Indication: NON-SMALL CELL LUNG CANCER
     Dosage: 1125 MG, UNK
     Route: 042
     Dates: start: 20080402
  2. BLINDED BEVACIZUMAB [Suspect]
     Indication: NON-SMALL CELL LUNG CANCER
     Dosage: 1125 MG, UNK
     Route: 042
     Dates: start: 20080402
  3. CARBOPLATIN [Suspect]
     Indication: NON-SMALL CELL LUNG CANCER
     Dosage: 1125 MG, UNK
     Route: 042
     Dates: start: 20080402
  4. PACLITAXEL [Suspect]
     Indication: NON-SMALL CELL LUNG CANCER
     Dosage: 1125 MG, UNK
     Route: 042
     Dates: start: 20080402
  5. BLINDED PLACEBO [Suspect]
     Indication: NON-SMALL CELL LUNG CANCER
     Dosage: 1125 MG, UNK
     Route: 042
     Dates: start: 20080402
  6. BEVACIZUMAB [Suspect]
     Indication: NON-SMALL CELL LUNG CANCER
     Dosage: 1125 MG, UNK
     Route: 042
     Dates: start: 20080402
  7. CARBOPLATIN [Suspect]
     Indication: NON-SMALL CELL LUNG CANCER
     Dosage: 740 MG, UNK
     Route: 042
     Dates: start: 20080402
  8. PACLITAXEL [Suspect]
     Indication: NON-SMALL CELL LUNG CANCER
     Dosage: 365 MG, UNK
     Route: 042
     Dates: start: 20080402
  9. LEVOTHYROXINE SODIUM [Concomitant]
     Indication: HYPOTHYROIDISM
     Dosage: 100 A?G, QD

REACTIONS (1)
  - BRONCHOPLEURAL FISTULA [None]
